FAERS Safety Report 4300720-3 (Version None)
Quarter: 2004Q1

REPORT INFORMATION
  Report Type: 
  Country: None (occurrence: None)
  Receive Date: 20040218
  Receipt Date: 20040129
  Transmission Date: 20041129
  Serious: Yes (Hospitalization, Other)
  Sender: FDA-Public Use
  Company Number: USA040157995

PATIENT
  Age: 51 Year
  Sex: Female
  Weight: 100 kg

DRUGS (2)
  1. EVISTA [Suspect]
     Indication: OSTEOPOROSIS
     Dosage: 60 MG/DAY
     Dates: start: 20031001
  2. EVISTA [Suspect]
     Indication: PROPHYLAXIS
     Dosage: 60 MG/DAY
     Dates: start: 20031001

REACTIONS (2)
  - KNEE ARTHROPLASTY [None]
  - POSTOPERATIVE THROMBOSIS [None]
